FAERS Safety Report 17807371 (Version 1)
Quarter: 2020Q2

REPORT INFORMATION
  Report Type: Spontaneous
  Country: US (occurrence: US)
  Receive Date: 20200520
  Receipt Date: 20200520
  Transmission Date: 20200714
  Serious: Yes (Hospitalization, Other)
  Sender: FDA-Public Use
  Company Number: None

PATIENT
  Age: 64 Year
  Sex: Male
  Weight: 106 kg

DRUGS (22)
  1. ACETAMINOPHEN. [Concomitant]
     Active Substance: ACETAMINOPHEN
  2. ASPIRIN. [Concomitant]
     Active Substance: ASPIRIN
  3. CLOPIDOGREL [Concomitant]
     Active Substance: CLOPIDOGREL BISULFATE
  4. SARILUMAB [Suspect]
     Active Substance: SARILUMAB
     Indication: COVID-19
     Dosage: ?          OTHER FREQUENCY:ONCE;?
     Route: 040
     Dates: start: 20200406, end: 20200406
  5. ALBUTEROL. [Concomitant]
     Active Substance: ALBUTEROL
  6. CHLOROTHIAZIDE. [Concomitant]
     Active Substance: CHLOROTHIAZIDE
  7. DIPHENHYDRAMINE. [Concomitant]
     Active Substance: DIPHENHYDRAMINE
  8. ALTEPLASE. [Concomitant]
     Active Substance: ALTEPLASE
  9. AMIODARONE [Concomitant]
     Active Substance: AMIODARONE
  10. AMLODIPINE [Concomitant]
     Active Substance: AMLODIPINE BESYLATE
  11. VENELEX OINTMENT [Concomitant]
  12. BISACODYL. [Concomitant]
     Active Substance: BISACODYL
  13. CISATRACURIUM. [Concomitant]
     Active Substance: CISATRACURIUM
  14. BUMETANIDE. [Concomitant]
     Active Substance: BUMETANIDE
  15. CEFTRIAXONE. [Concomitant]
     Active Substance: CEFTRIAXONE
  16. AZITHROMYCIN ANHYDROUS. [Concomitant]
     Active Substance: AZITHROMYCIN ANHYDROUS
  17. CHLORHEXIDINE [Concomitant]
     Active Substance: CHLORHEXIDINE
  18. CEFEPIME [Concomitant]
     Active Substance: CEFEPIME HYDROCHLORIDE
  19. DEXTROSE 10% + 50% [Concomitant]
  20. DOCUSATE [Concomitant]
     Active Substance: DOCUSATE
  21. APIXABAN [Concomitant]
     Active Substance: APIXABAN
  22. ARTIFICIAL TEARS [Concomitant]
     Active Substance: GLYCERIN\HYPROMELLOSES\POLYETHYLENE GLYCOL 400

REACTIONS (12)
  - Cardiac arrest [None]
  - Renal failure [None]
  - Off label use [None]
  - Atrial fibrillation [None]
  - Gastrointestinal haemorrhage [None]
  - Colitis ischaemic [None]
  - Cytomegalovirus colitis [None]
  - Immunosuppression [None]
  - Decubitus ulcer [None]
  - Haemodialysis [None]
  - Pneumonia bacterial [None]
  - Pneumothorax [None]

NARRATIVE: CASE EVENT DATE: 20200518
